FAERS Safety Report 25976338 (Version 1)
Quarter: 2025Q4

REPORT INFORMATION
  Report Type: Spontaneous
  Country: GB (occurrence: GB)
  Receive Date: 20251029
  Receipt Date: 20251029
  Transmission Date: 20260118
  Serious: Yes (Other)
  Sender: PFIZER
  Company Number: GB-MHRA-TPP610595C9763133YC1760517555280

PATIENT
  Age: 53 Year
  Sex: Male
  Weight: 70 kg

DRUGS (7)
  1. VARENICLINE TARTRATE [Suspect]
     Active Substance: VARENICLINE TARTRATE
     Dosage: 500 UG
     Dates: start: 20251015
  2. BUPRENORPHINE HYDROCHLORIDE [Concomitant]
     Active Substance: BUPRENORPHINE HYDROCHLORIDE
     Dosage: UNK
  3. NAPROXEN [Concomitant]
     Active Substance: NAPROXEN
     Dosage: UNK
  4. MIRTAZAPINE [Concomitant]
     Active Substance: MIRTAZAPINE
     Dosage: 1 DF, 1X/DAY
     Dates: start: 20250916
  5. ALENDRONIC ACID [Concomitant]
     Active Substance: ALENDRONIC ACID
     Indication: Ill-defined disorder
     Dosage: 1 DF, WEEKLY
     Dates: start: 20251006
  6. PIROXICAM [Concomitant]
     Active Substance: PIROXICAM
     Dosage: APPLY TO AFFECTED AREA 3 TIMES A DAY AS REQUIRED
     Dates: start: 20251006
  7. CARBAZOCHROME [Concomitant]
     Active Substance: CARBAZOCHROME
     Dosage: 1 TO BE TAKEN TWICE DAILY
     Dates: start: 20251006

REACTIONS (2)
  - Peripheral swelling [Recovered/Resolved]
  - Skin laceration [Recovered/Resolved]
